FAERS Safety Report 6944624-6 (Version None)
Quarter: 2010Q3

REPORT INFORMATION
  Report Type: 
  Country: None (occurrence: None)
  Receive Date: 20100827
  Receipt Date: 20100816
  Transmission Date: 20110219
  Serious: Yes (Death, Hospitalization)
  Sender: FDA-Public Use
  Company Number: CL-PFIZER INC-2010104143

PATIENT
  Age: 27 Year
  Sex: Male
  Weight: 95 kg

DRUGS (12)
  1. ECALTA [Suspect]
     Indication: CANDIDIASIS
     Dosage: 100 MG, 1X/DAY
     Route: 042
     Dates: start: 20100709, end: 20100716
  2. GEMFIBROZIL [Suspect]
     Indication: HYPERLIPIDAEMIA
     Dosage: 600
     Dates: start: 20100712, end: 20100717
  3. OMEPRAZOLE [Concomitant]
     Indication: PROPHYLAXIS AGAINST GASTROINTESTINAL ULCER
     Dosage: 40 MG, 1X/DAY
     Route: 048
     Dates: start: 20100528, end: 20100724
  4. FRAGMIN [Concomitant]
     Indication: THROMBOSIS PROPHYLAXIS
     Dosage: 7500 IU, 1X/DAY
     Route: 058
     Dates: start: 20100710, end: 20100801
  5. IMIPENEM [Concomitant]
     Indication: ABDOMINAL INFECTION
     Dosage: 500 MG, 4X/DAY
     Route: 042
     Dates: start: 20100709, end: 20100724
  6. VANCOMYCIN [Concomitant]
     Indication: ABDOMINAL INFECTION
     Dosage: UNK
     Dates: start: 20100709, end: 20100712
  7. ACETAMINOPHEN [Concomitant]
     Indication: ANTIPYRESIS
     Dosage: 1 G, 3X/DAY
     Route: 048
     Dates: start: 20100707, end: 20100716
  8. CLONAZEPAM [Concomitant]
     Indication: INSOMNIA
     Dosage: 1 MG, 1X/DAY
     Dates: start: 20100626, end: 20100806
  9. QUETIAPINE [Concomitant]
     Indication: DELIRIUM
     Dosage: 12.5 MG, 3X/DAY
     Dates: start: 20100612, end: 20100710
  10. BERODUAL [Concomitant]
     Dosage: 3 ML, 4X/DAY
     Dates: start: 20100630, end: 20100722
  11. SERTRALINE HYDROCHLORIDE [Concomitant]
     Indication: ANTIDEPRESSANT THERAPY
     Dosage: 50 MG, 1X/DAY
     Dates: start: 20100617, end: 20100802
  12. METOCLOPRAMIDE [Concomitant]
     Indication: VOMITING
     Dosage: 10 MG, 3X/DAY
     Route: 042
     Dates: start: 20100710, end: 20100807

REACTIONS (2)
  - HEPATIC ENZYME INCREASED [None]
  - HEPATITIS [None]
